FAERS Safety Report 6082320-0 (Version None)
Quarter: 2009Q1

REPORT INFORMATION
  Report Type: 
  Country: None (occurrence: None)
  Receive Date: 20090130
  Receipt Date: 20080118
  Transmission Date: 20090719
  Serious: Yes (Hospitalization)
  Sender: FDA-Public Use
  Company Number: 542234

PATIENT
  Age: 39 Year
  Sex: Male

DRUGS (5)
  1. RIBAVIRIN [Suspect]
     Indication: CHRONIC HEPATITIS
     Dosage: 3 PER WEEK
     Dates: start: 20010801
  2. INTRON A [Suspect]
     Indication: CHRONIC HEPATITIS
     Dates: start: 20010801
  3. PEG-INTERFERON ALFA NOS (PEG-INTERFERON ALFA NOS) [Suspect]
     Indication: CHRONIC HEPATITIS
     Dosage: 180 MCG 1 PER WEEK
     Dates: start: 20020101
  4. FLUOXETINE [Concomitant]
  5. ZOLPIDEM TARTRATE [Concomitant]

REACTIONS (9)
  - ABDOMINAL PAIN [None]
  - DEPRESSED MOOD [None]
  - DYSTONIA [None]
  - FATIGUE [None]
  - INFLUENZA LIKE ILLNESS [None]
  - MALAISE [None]
  - MANIA [None]
  - NAUSEA [None]
  - TEARFULNESS [None]
